FAERS Safety Report 8937408 (Version 1)
Quarter: 2012Q4

REPORT INFORMATION
  Report Type: 
  Country: US (occurrence: US)
  Receive Date: 20121121
  Receipt Date: 20121121
  Transmission Date: 20130627
  Serious: Yes (Death, Hospitalization, Other)
  Sender: FDA-Public Use
  Company Number: US-ASTELLAS-1033638

PATIENT
  Sex: Male

DRUGS (3)
  1. TARCEVA [Suspect]
     Indication: LUNG NEOPLASM MALIGNANT
  2. NAVELBINE [Concomitant]
     Dates: end: 200610
  3. CARBOPLATIN [Concomitant]
     Dates: end: 200610

REACTIONS (2)
  - Death [Fatal]
  - Metastatic neoplasm [Unknown]
